FAERS Safety Report 9169244 (Version 1)
Quarter: 2013Q1

REPORT INFORMATION
  Report Type: Report from Study
  Country: BR (occurrence: BR)
  Receive Date: 20130318
  Receipt Date: 20130318
  Transmission Date: 20140127
  Serious: Yes (Hospitalization)
  Sender: FDA-Public Use
  Company Number: BR-ROCHE-789400

PATIENT
  Sex: Female
  Weight: 65 kg

DRUGS (9)
  1. MABTHERA [Suspect]
     Indication: RHEUMATOID ARTHRITIS
     Dosage: THREE CYCLES OF THE DRUG (IN AUG 2010,FEB 2011AND JUN 2011)
     Route: 065
     Dates: start: 201008, end: 201106
  2. FOLIC ACID [Concomitant]
     Route: 065
  3. DIPYRONE [Concomitant]
     Route: 065
  4. OMEPRAZOLE [Concomitant]
     Indication: GASTRIC DISORDER
     Route: 065
  5. FLEBOCORTID [Concomitant]
  6. BENADRYL [Concomitant]
  7. PREDNISONE [Concomitant]
     Route: 065
  8. ARAVA [Concomitant]
  9. CHLOROQUINE [Concomitant]
     Route: 065

REACTIONS (1)
  - Musculoskeletal disorder [Recovered/Resolved]
